FAERS Safety Report 4694680-3 (Version None)
Quarter: 2005Q2

REPORT INFORMATION
  Report Type: 
  Country: None (occurrence: None)
  Receive Date: 20050620
  Receipt Date: 20050606
  Transmission Date: 20051028
  Serious: Yes (Life-Threatening)
  Sender: FDA-Public Use
  Company Number: AT-GLAXOSMITHKLINE-B0384326A

PATIENT
  Age: 46 Year
  Sex: Female

DRUGS (5)
  1. LAMOTRIGINE [Suspect]
     Indication: DRUG USE FOR UNKNOWN INDICATION
     Dosage: 200MG PER DAY
     Route: 048
     Dates: start: 19990101
  2. IMPLANON [Concomitant]
     Indication: CONTRACEPTION
     Route: 058
  3. TRESLEEN [Concomitant]
     Indication: DRUG USE FOR UNKNOWN INDICATION
     Dosage: 50MG PER DAY
     Route: 048
     Dates: start: 20050121
  4. TEMESTA [Concomitant]
     Indication: DRUG USE FOR UNKNOWN INDICATION
     Route: 048
     Dates: start: 20050118, end: 20050125
  5. DOMINAL [Concomitant]
     Indication: DRUG USE FOR UNKNOWN INDICATION
     Route: 048
     Dates: start: 20050118, end: 20050126

REACTIONS (3)
  - ACUTE PSYCHOSIS [None]
  - DEPRESSION [None]
  - SCHIZOAFFECTIVE DISORDER [None]
